FAERS Safety Report 5454244-0 (Version None)
Quarter: 2007Q3

REPORT INFORMATION
  Report Type: 
  Country: None (occurrence: None)
  Receive Date: 20070802
  Receipt Date: 20070409
  Transmission Date: 20080115
  Serious: No
  Sender: FDA-Public Use
  Company Number: 2007US000798

PATIENT
  Age: 91 Year
  Sex: Female

DRUGS (2)
  1. VAPRISOL [Suspect]
     Indication: HYPONATRAEMIA
     Dosage: 20 MG, TOTAL DOSE, PARENTERAL
     Route: 051
     Dates: start: 20070329
  2. LEVAQUIN [Concomitant]

REACTIONS (1)
  - BLOOD SODIUM INCREASED [None]
